FAERS Safety Report 23196069 (Version 1)
Quarter: 2023Q4

REPORT INFORMATION
  Report Type: Spontaneous
  Country: US (occurrence: None)
  Receive Date: 20231116
  Receipt Date: 20231116
  Transmission Date: 20240109
  Serious: Yes (Death, Hospitalization)
  Sender: FDA-Public Use
  Company Number: None

PATIENT
  Age: 69 Year
  Sex: Female

DRUGS (1)
  1. PROMACTA [Suspect]
     Active Substance: ELTROMBOPAG OLAMINE
     Indication: Immune system disorder
     Dosage: FREQUENCY : DAILY;?
     Route: 048
     Dates: start: 20210304, end: 20231112

REACTIONS (8)
  - Abdominal pain [None]
  - Nausea [None]
  - Vomiting [None]
  - Unresponsive to stimuli [None]
  - Pulseless electrical activity [None]
  - Cardiac arrest [None]
  - Haemoglobin decreased [None]
  - Gastrointestinal haemorrhage [None]

NARRATIVE: CASE EVENT DATE: 20231111
